FAERS Safety Report 24316170 (Version 2)
Quarter: 2025Q4

REPORT INFORMATION
  Report Type: Spontaneous
  Country: US (occurrence: US)
  Receive Date: 20240913
  Receipt Date: 20251009
  Transmission Date: 20260118
  Serious: No
  Sender: BAXTER
  Company Number: US-BAXTER-2024BAX024463

PATIENT

DRUGS (2)
  1. REGADENOSON [Suspect]
     Active Substance: REGADENOSON
     Dosage: UNK
  2. REGADENOSON [Suspect]
     Active Substance: REGADENOSON
     Dosage: UNK

REACTIONS (1)
  - No adverse event [Unknown]
